FAERS Safety Report 9343610 (Version 3)
Quarter: 2013Q4

REPORT INFORMATION
  Report Type: Report from Study
  Country: US (occurrence: US)
  Receive Date: 20130612
  Receipt Date: 20131220
  Transmission Date: 20140711
  Serious: Yes (Hospitalization, Other)
  Sender: FDA-Public Use
  Company Number: US-SHIRE-ALL1-2013-02213

PATIENT
  Age: 52 Year
  Sex: Female
  Weight: 83.9 kg

DRUGS (7)
  1. SERTRALINE HYDROCHLORIDE [Suspect]
     Indication: MAJOR DEPRESSION
     Dosage: 200 MG, 1X/DAY:QD (ADT)
     Route: 048
     Dates: start: 20130118, end: 20130405
  2. SERTRALINE HYDROCHLORIDE [Suspect]
     Dosage: 100 MG, 1X/DAY:QD
     Route: 048
     Dates: start: 20130108, end: 20130118
  3. IBUPROFEN [Concomitant]
     Indication: NECK PAIN
     Dosage: UNK, UNKNOWN
     Route: 065
     Dates: start: 201211
  4. MULTIVITAMIN                       /00097801/ [Concomitant]
     Indication: VITAMIN SUPPLEMENTATION
     Dosage: UNK, UNKNOWN
     Route: 065
     Dates: start: 20130202
  5. ASPIRIN [Concomitant]
     Indication: ROUTINE HEALTH MAINTENANCE
     Dosage: UNK, UNKNOWN
     Route: 065
     Dates: start: 20130202
  6. PLACEBO [Suspect]
     Indication: MAJOR DEPRESSION
     Dosage: 50 MG, 1X/DAY:QD
     Route: 048
     Dates: start: 20130402, end: 20130405
  7. PLACEBO [Suspect]
     Dosage: UNK
     Dates: start: 20130316

REACTIONS (1)
  - Suicidal ideation [Recovered/Resolved]
